FAERS Safety Report 15157248 (Version 1)
Quarter: 2018Q3

REPORT INFORMATION
  Report Type: Report from Study
  Country: ES (occurrence: ES)
  Receive Date: 20180718
  Receipt Date: 20180718
  Transmission Date: 20181010
  Serious: Yes (Other)
  Sender: FDA-Public Use
  Company Number: ES-TEVA-2018-ES-927777

PATIENT
  Age: 82 Year
  Sex: Male

DRUGS (4)
  1. ESCITALOPRAM [Concomitant]
     Active Substance: ESCITALOPRAM OXALATE
     Dosage: 10 MILLIGRAM DAILY;
     Route: 048
     Dates: start: 20171020
  2. DEPRAX 100 MG COMPRIMIDOS RECUBIERTOS CON PELICULA EFG , 30 COMPRIMIDO [Concomitant]
     Active Substance: TRAZODONE HYDROCHLORIDE
     Indication: INSOMNIA
     Route: 048
     Dates: start: 20171020
  3. REMINYL [Concomitant]
     Active Substance: GALANTAMINE
     Indication: COGNITIVE DISORDER
     Route: 048
     Dates: start: 20171220, end: 20180108
  4. QUETIAPINA (1136A) [Suspect]
     Active Substance: QUETIAPINE
     Indication: COGNITIVE DISORDER
     Route: 048
     Dates: start: 20171220, end: 20180105

REACTIONS (2)
  - Somnolence [Recovered/Resolved]
  - Depressed level of consciousness [Not Recovered/Not Resolved]

NARRATIVE: CASE EVENT DATE: 20171220
